FAERS Safety Report 15533195 (Version 2)
Quarter: 2018Q4

REPORT INFORMATION
  Report Type: Spontaneous
  Country: IT (occurrence: IT)
  Receive Date: 20181019
  Receipt Date: 20181126
  Transmission Date: 20190205
  Serious: Yes (Death)
  Sender: FDA-Public Use
  Company Number: IT-PFIZER INC-2018422130

PATIENT
  Age: 57 Year
  Sex: Female

DRUGS (2)
  1. MORPHINE SULFATE. [Suspect]
     Active Substance: MORPHINE SULFATE
     Indication: ANALGESIC THERAPY
     Dosage: UNK
  2. OXAZEPAM. [Suspect]
     Active Substance: OXAZEPAM
     Indication: ANALGESIC THERAPY
     Dosage: UNK

REACTIONS (1)
  - Pulmonary granuloma [Fatal]
